FAERS Safety Report 7910512-1 (Version None)
Quarter: 2011Q4

REPORT INFORMATION
  Report Type: 
  Country: None (occurrence: None)
  Receive Date: 20111111
  Receipt Date: 20111102
  Transmission Date: 20120403
  Serious: Yes (Hospitalization)
  Sender: FDA-Public Use
  Company Number: JP-B.I. PHARMACEUTICALS,INC./RIDGEFIELD-2011-BP-22274NB

PATIENT
  Sex: Female
  Weight: 47 kg

DRUGS (3)
  1. MEDICATION NOT FURTHER SPECIFIED [Suspect]
     Indication: HEADACHE
     Route: 048
  2. PRAMIPEXOLE DIHYDROCHLORIDE [Suspect]
     Indication: RESTLESS LEGS SYNDROME
     Dosage: 0.5 MG
     Route: 048
     Dates: start: 20110914, end: 20110914
  3. LOXONIN [Suspect]
     Indication: HEADACHE
     Route: 048

REACTIONS (6)
  - PALPITATIONS [None]
  - CONFUSIONAL STATE [None]
  - VOMITING [None]
  - TREMOR [None]
  - NAUSEA [None]
  - AGITATION [None]
